FAERS Safety Report 25487295 (Version 2)
Quarter: 2025Q3

REPORT INFORMATION
  Report Type: Report from Study
  Country: CA (occurrence: CA)
  Receive Date: 20250627
  Receipt Date: 20250804
  Transmission Date: 20251021
  Serious: Yes (Other)
  Sender: CELLTRION
  Company Number: CA-CELLTRION INC.-2025CA002348

PATIENT

DRUGS (1)
  1. USTEKINUMAB [Suspect]
     Active Substance: USTEKINUMAB
     Indication: Crohn^s disease
     Dosage: 90 MG EVERY 4 WEEKS/ 90 MILLIGRAM, 1 EVERY 4 WEEKS
     Route: 058
     Dates: start: 20250129, end: 20250725

REACTIONS (5)
  - Crohn^s disease [Unknown]
  - Erythema [Unknown]
  - Skin exfoliation [Unknown]
  - Intentional product use issue [Unknown]
  - Treatment failure [Unknown]

NARRATIVE: CASE EVENT DATE: 20250725
